FAERS Safety Report 8916674 (Version 2)
Quarter: 2013Q4

REPORT INFORMATION
  Report Type: Spontaneous
  Country: US (occurrence: US)
  Receive Date: 20121120
  Receipt Date: 20131105
  Transmission Date: 20140711
  Serious: Yes (Hospitalization, Other)
  Sender: FDA-Public Use
  Company Number: US-009507513-1211USA007600

PATIENT
  Sex: Female

DRUGS (19)
  1. FOSAMAX [Suspect]
     Indication: OSTEOPENIA
     Dosage: 70 MG, UNK
     Route: 048
     Dates: start: 200206, end: 200304
  2. FOSAMAX [Suspect]
     Dosage: 70 MG, UNK
     Route: 048
     Dates: start: 200305, end: 200811
  3. FOSAMAX [Suspect]
     Dosage: 70 MG, QW
     Route: 048
     Dates: start: 201007, end: 201011
  4. FOSAMAX [Suspect]
     Indication: OSTEOPOROSIS
     Route: 048
  5. CORTICOSTEROIDS (UNSPECIFIED) [Concomitant]
     Dosage: UNK
     Dates: start: 1995, end: 201205
  6. ALENDRONATE SODIUM [Suspect]
     Indication: OSTEOPENIA
     Dosage: 70 MG, UNK
     Route: 048
     Dates: start: 20081229, end: 201006
  7. PREDNISONE [Concomitant]
     Indication: BRONCHOPULMONARY ASPERGILLOSIS ALLERGIC
     Dosage: 5-10 MG, QOD
     Route: 048
  8. PREDNISONE [Concomitant]
     Indication: ASTHMA
  9. COUMADIN [Concomitant]
     Indication: THROMBOSIS PROPHYLAXIS
     Dosage: UNK
  10. ADVAIR [Concomitant]
     Indication: BRONCHOPULMONARY ASPERGILLOSIS ALLERGIC
     Dosage: 500-50 MICROGRAM, BID
  11. ADVAIR [Concomitant]
     Indication: ASTHMA
  12. ALBUTEROL [Concomitant]
     Indication: BRONCHOPULMONARY ASPERGILLOSIS ALLERGIC
     Dosage: 90 MICROGRAM, Q4H
  13. ALBUTEROL [Concomitant]
     Indication: ASTHMA
  14. CALCIUM (UNSPECIFIED) [Concomitant]
     Indication: OSTEOPENIA
  15. VITAMIN D (UNSPECIFIED) [Concomitant]
     Indication: OSTEOPENIA
  16. PHYTONADIONE [Concomitant]
     Indication: THROMBOSIS PROPHYLAXIS
  17. PHYTONADIONE [Concomitant]
     Indication: THROMBOSIS PROPHYLAXIS
  18. WARFARIN SODIUM [Concomitant]
     Indication: THROMBOSIS PROPHYLAXIS
     Dosage: 4 MG, UNK
     Route: 048
  19. WARFARIN SODIUM [Concomitant]
     Indication: THROMBOSIS PROPHYLAXIS

REACTIONS (20)
  - Femur fracture [Unknown]
  - Open reduction of fracture [Unknown]
  - Femur fracture [Unknown]
  - Cholecystectomy [Unknown]
  - Intramedullary rod insertion [Unknown]
  - Intramedullary rod insertion [Unknown]
  - Bladder operation [Unknown]
  - Low turnover osteopathy [Unknown]
  - Tonsillectomy [Unknown]
  - Haemorrhagic anaemia [Unknown]
  - Cough [Unknown]
  - Sleep disorder [Unknown]
  - Dry eye [Unknown]
  - International normalised ratio increased [Unknown]
  - Urinary tract infection [Unknown]
  - Wheezing [Unknown]
  - Muscle spasms [Unknown]
  - Urticaria [Unknown]
  - Pruritus [Unknown]
  - Rash [Unknown]
